FAERS Safety Report 20059702 (Version 2)
Quarter: 2021Q4

REPORT INFORMATION
  Report Type: Spontaneous
  Country: CA (occurrence: CA)
  Receive Date: 20211111
  Receipt Date: 20211123
  Transmission Date: 20220303
  Serious: Yes (Death, Other)
  Sender: FDA-Public Use
  Company Number: CA-JAZZ-2021-CA-020472

PATIENT
  Age: 55 Year
  Sex: Female

DRUGS (1)
  1. DEFITELIO [Suspect]
     Active Substance: DEFIBROTIDE SODIUM
     Indication: Venoocclusive liver disease
     Dosage: UNKNOWN DOSE AND FREQUENCY
     Dates: start: 20210924, end: 20211001

REACTIONS (3)
  - Encephalopathy [Fatal]
  - Disease progression [Fatal]
  - Venoocclusive liver disease [Fatal]
